FAERS Safety Report 9222635 (Version 1)
Quarter: 2013Q2

REPORT INFORMATION
  Report Type: Report from Study
  Country: FR (occurrence: FR)
  Receive Date: 20130410
  Receipt Date: 20130410
  Transmission Date: 20140414
  Serious: Yes (Life-Threatening, Hospitalization)
  Sender: FDA-Public Use
  Company Number: FR-ROCHE-1208486

PATIENT
  Age: 54 Year
  Sex: Male

DRUGS (3)
  1. TENECTEPLASE [Suspect]
     Indication: MYOCARDIAL INFARCTION
     Route: 042
     Dates: start: 20051028, end: 20051028
  2. ASPIRIN [Concomitant]
     Indication: MYOCARDIAL INFARCTION
  3. HEPARIN [Concomitant]
     Indication: MYOCARDIAL INFARCTION

REACTIONS (2)
  - Cardiac arrest [Recovered/Resolved]
  - Ventricular fibrillation [Recovered/Resolved]
